FAERS Safety Report 13131951 (Version 3)
Quarter: 2017Q2

REPORT INFORMATION
  Report Type: Spontaneous
  Country: US (occurrence: US)
  Receive Date: 20170119
  Receipt Date: 20170523
  Transmission Date: 20170830
  Serious: Yes (Other)
  Sender: FDA-Public Use
  Company Number: US-TEVA-730150USA

PATIENT
  Sex: Male

DRUGS (1)
  1. COPAXONE [Suspect]
     Active Substance: GLATIRAMER ACETATE
     Dosage: FORM STRENGTH UNKNOWN
     Route: 065

REACTIONS (3)
  - Liver injury [Unknown]
  - Multiple sclerosis relapse [Unknown]
  - Drug ineffective [Unknown]
